FAERS Safety Report 14037280 (Version 3)
Quarter: 2017Q4

REPORT INFORMATION
  Report Type: Spontaneous
  Country: CA (occurrence: CA)
  Receive Date: 20171004
  Receipt Date: 20171115
  Transmission Date: 20180321
  Serious: Yes (Hospitalization, Other)
  Sender: FDA-Public Use
  Company Number: CA-ABBVIE-17K-028-2116196-00

PATIENT
  Age: 86 Year
  Sex: Female

DRUGS (2)
  1. DUODOPA [Suspect]
     Active Substance: CARBIDOPA\LEVODOPA
     Route: 050
     Dates: start: 20171005
  2. DUODOPA [Suspect]
     Active Substance: CARBIDOPA\LEVODOPA
     Indication: PARKINSON^S DISEASE
     Route: 050
     Dates: start: 201307, end: 20170920

REACTIONS (7)
  - Gastrointestinal complication associated with device [Unknown]
  - Bezoar [Recovered/Resolved]
  - Device occlusion [Recovered/Resolved]
  - Intestinal perforation [Unknown]
  - Diverticulum [Unknown]
  - Peritoneal perforation [Not Recovered/Not Resolved]
  - Embedded device [Unknown]

NARRATIVE: CASE EVENT DATE: 2017
